FAERS Safety Report 6486078-2 (Version None)
Quarter: 2009Q4

REPORT INFORMATION
  Report Type: 
  Country: None (occurrence: None)
  Receive Date: 20091207
  Receipt Date: 20091123
  Transmission Date: 20100525
  Serious: Yes (Other)
  Sender: FDA-Public Use
  Company Number: 2009AC000449

PATIENT
  Age: 40 Year
  Sex: Male

DRUGS (5)
  1. DIGOXIN [Suspect]
     Dosage: PO
     Route: 048
     Dates: start: 20030101
  2. TOPROL-XL [Concomitant]
  3. DEMADEX [Concomitant]
  4. POTASSIUM CHLORIDE [Concomitant]
  5. ACCUPRIL [Concomitant]

REACTIONS (8)
  - BLOOD URINE PRESENT [None]
  - ECONOMIC PROBLEM [None]
  - HEART RATE IRREGULAR [None]
  - MULTIPLE INJURIES [None]
  - MYOCARDIAL INFARCTION [None]
  - RENAL IMPAIRMENT [None]
  - SURGERY [None]
  - UNEVALUABLE EVENT [None]
